FAERS Safety Report 9131326 (Version 1)
Quarter: 2013Q1

REPORT INFORMATION
  Report Type: Spontaneous
  Country: JP (occurrence: JP)
  Receive Date: 20130301
  Receipt Date: 20130301
  Transmission Date: 20140127
  Serious: Yes (Death, Life-Threatening, Other)
  Sender: FDA-Public Use
  Company Number: JP-ASTELLAS-2013US002170

PATIENT
  Age: 77 Year
  Sex: Female
  Weight: 50 kg

DRUGS (10)
  1. TARCEVA [Suspect]
     Indication: NON-SMALL CELL LUNG CANCER
     Dosage: 150 MG, UID/QD
     Route: 048
     Dates: start: 20120509, end: 20120623
  2. TARCEVA [Suspect]
     Dosage: 150 MG, UID/QD
     Route: 048
     Dates: start: 20120719, end: 20120730
  3. BACTRAMIN [Suspect]
     Indication: PNEUMOCYSTIS JIROVECII PNEUMONIA
     Dosage: 6 DF, UID/QD
     Route: 048
     Dates: start: 20120628, end: 20120806
  4. MYSLEE [Concomitant]
     Indication: INSOMNIA
     Dosage: 10 MG, UID/QD
     Route: 048
     Dates: start: 20120724
  5. DEPAKENE-R [Concomitant]
     Indication: CONVULSION PROPHYLAXIS
     Dosage: 200 MG, BID
     Route: 048
     Dates: start: 20120109, end: 20120806
  6. MEVALOTIN [Concomitant]
     Indication: HYPERLIPIDAEMIA
     Dosage: 10 MG, UID/QD
     Route: 048
     Dates: start: 20120305, end: 20120806
  7. DEPROMEL                           /00615201/ [Concomitant]
     Indication: DEPRESSION
     Dosage: 25 MG, BID
     Route: 048
     Dates: start: 20120305, end: 20120806
  8. GASMOTIN [Concomitant]
     Indication: GASTRITIS
     Dosage: 5 MG, BID
     Route: 048
     Dates: start: 20120305, end: 20120806
  9. DECADRON                           /00016001/ [Concomitant]
     Indication: BRAIN OEDEMA
     Dosage: 1 MG, BID
     Route: 048
     Dates: start: 20120329, end: 20120811
  10. ISOBIDE                            /00586301/ [Concomitant]
     Indication: BRAIN OEDEMA
     Dosage: 30 ML, TID
     Route: 048
     Dates: start: 20120605, end: 20120810

REACTIONS (7)
  - Abdominal infection [Fatal]
  - Liver disorder [Not Recovered/Not Resolved]
  - Hepatitis [Unknown]
  - Gastrointestinal perforation [Fatal]
  - Cytomegalovirus infection [Unknown]
  - Pneumocystis jirovecii pneumonia [Unknown]
  - Osteoporosis [Unknown]
